FAERS Safety Report 7074150-8 (Version None)
Quarter: 2010Q4

REPORT INFORMATION
  Report Type: 
  Country: None (occurrence: None)
  Receive Date: 20101029
  Receipt Date: 20101022
  Transmission Date: 20110411
  Serious: Yes (Other)
  Sender: FDA-Public Use
  Company Number: JP-PFIZER INC-2010134828

PATIENT
  Sex: Female

DRUGS (1)
  1. ZITHROMAC SR [Suspect]
     Dosage: 2 G, SINGLE
     Route: 048
     Dates: start: 20101020

REACTIONS (1)
  - FAECES DISCOLOURED [None]
